FAERS Safety Report 23337557 (Version 2)
Quarter: 2024Q3

REPORT INFORMATION
  Report Type: Spontaneous
  Country: FR (occurrence: FR)
  Receive Date: 20231226
  Receipt Date: 20240711
  Transmission Date: 20241017
  Serious: Yes (Other)
  Sender: BRISTOL MYERS SQUIBB
  Company Number: None

PATIENT
  Age: 89 Year
  Sex: Female

DRUGS (2)
  1. ELIQUIS [Suspect]
     Active Substance: APIXABAN
     Indication: Anticoagulant therapy
     Route: 048
     Dates: start: 202310, end: 20231114
  2. IOMERON [Suspect]
     Active Substance: IOMEPROL
     Indication: High-resolution computerised tomogram of lung
     Dosage: 350 MG IODINE/ML
     Route: 042
     Dates: start: 20231108, end: 20231108

REACTIONS (3)
  - Eosinophilia [Recovered/Resolved]
  - Erythema [Recovered/Resolved]
  - Off label use [Unknown]

NARRATIVE: CASE EVENT DATE: 20231108
